FAERS Safety Report 7842246-6 (Version None)
Quarter: 2011Q4

REPORT INFORMATION
  Report Type: 
  Country: None (occurrence: None)
  Receive Date: 20111025
  Receipt Date: 20111021
  Transmission Date: 20120403
  Serious: Yes (Life-Threatening, Other)
  Sender: FDA-Public Use
  Company Number: AU-PFIZER INC-2011254376

PATIENT
  Sex: Male

DRUGS (8)
  1. VALPROATE SODIUM [Concomitant]
     Dosage: UNK
  2. DILANTIN [Suspect]
     Dosage: 600MG PER DAY
     Route: 048
  3. KETAMINE [Concomitant]
     Dosage: UNK
     Route: 048
  4. DILANTIN [Suspect]
     Dosage: 300MG PER DAY
     Route: 048
  5. VALIUM [Concomitant]
     Dosage: 25MG PER DAY
  6. DILANTIN [Suspect]
     Dosage: 700MG PER DAY
     Route: 048
  7. ACETYLSALICYLIC ACID [Concomitant]
     Dosage: 100MG PER DAY
  8. GABAPENTIN [Concomitant]
     Dosage: UNK

REACTIONS (3)
  - ANTICONVULSANT DRUG LEVEL BELOW THERAPEUTIC [None]
  - EPILEPSY [None]
  - BLOOD BILIRUBIN INCREASED [None]
